FAERS Safety Report 5208539-6 (Version None)
Quarter: 2007Q1

REPORT INFORMATION
  Report Type: 
  Country: None (occurrence: None)
  Receive Date: 20070115
  Receipt Date: 20070108
  Transmission Date: 20070707
  Serious: Yes (Hospitalization)
  Sender: FDA-Public Use
  Company Number: US-BOEHRINGER INGELHEIM PHARMACEUTICALS, INC.-2007-BP-00460BP

PATIENT
  Sex: Male

DRUGS (13)
  1. FLOMAX [Suspect]
     Indication: PROSTATE CANCER
     Route: 048
     Dates: start: 20061001
  2. LISINOPRIL [Concomitant]
  3. FELODIPINE [Concomitant]
  4. GABAPENTIN [Concomitant]
  5. AMITRIPTYLINE HCL [Concomitant]
  6. OMEPRAZOLE [Concomitant]
  7. CYCLOBENZAPRINE HCL [Concomitant]
  8. SIMVASTATIN [Concomitant]
  9. DARVOCET [Concomitant]
  10. VENLAFAXINE HCL [Concomitant]
  11. METHADONE HCL [Concomitant]
  12. ASPIRIN [Concomitant]
  13. TRELSTAR [Concomitant]

REACTIONS (3)
  - BLOOD PRESSURE DECREASED [None]
  - DIZZINESS [None]
  - FALL [None]
